FAERS Safety Report 19432526 (Version 2)
Quarter: 2021Q3

REPORT INFORMATION
  Report Type: Spontaneous
  Country: US (occurrence: US)
  Receive Date: 20210617
  Receipt Date: 20210825
  Transmission Date: 20211014
  Serious: Yes (Other)
  Sender: FDA-Public Use
  Company Number: US-BAYER-2021-155960

PATIENT
  Age: 21 Year

DRUGS (3)
  1. JIVI [Suspect]
     Active Substance: DAMOCTOCOG ALFA PEGOL
     Indication: FACTOR VIII DEFICIENCY
     Dosage: 50 IU/KG, BIW
  2. FACTOR VIII (ANTIHAEMOPHILIC FACTOR);PLASMA PROTEIN FRACTION (HUMA [Concomitant]
  3. JIVI [Suspect]
     Active Substance: DAMOCTOCOG ALFA PEGOL
     Indication: FACTOR VIII DEFICIENCY
     Dosage: 60 IU/KG, BIW

REACTIONS (4)
  - Muscle haemorrhage [None]
  - Haemarthrosis [None]
  - Joint injury [None]
  - Fall [None]
